FAERS Safety Report 9414948 (Version 1)
Quarter: 2013Q3

REPORT INFORMATION
  Report Type: Spontaneous
  Country: CA (occurrence: CA)
  Receive Date: 20130723
  Receipt Date: 20130723
  Transmission Date: 20140515
  Serious: Yes (Hospitalization, Other)
  Sender: FDA-Public Use
  Company Number: CA-ROXANE LABORATORIES, INC.-2013-RO-01180RO

PATIENT
  Age: 40 Year
  Sex: Male

DRUGS (3)
  1. PREDNISONE [Suspect]
     Indication: CROHN^S DISEASE
     Dosage: 15 MG
     Route: 048
  2. AZATHIOPRINE [Suspect]
     Indication: CROHN^S DISEASE
  3. ADALIMUMAB [Suspect]
     Indication: CROHN^S DISEASE
     Route: 058

REACTIONS (3)
  - Herpes zoster meningitis [Recovered/Resolved with Sequelae]
  - Infection reactivation [Unknown]
  - Pancreatitis acute [Unknown]
